FAERS Safety Report 17418702 (Version 2)
Quarter: 2020Q1

REPORT INFORMATION
  Report Type: Report from Study
  Country: JO (occurrence: JO)
  Receive Date: 20200214
  Receipt Date: 20200312
  Transmission Date: 20200409
  Serious: Yes (Hospitalization)
  Sender: FDA-Public Use
  Company Number: JO-PFIZER INC-2020057271

PATIENT
  Age: 63 Year
  Sex: Male
  Weight: 91 kg

DRUGS (4)
  1. CALCIUM FOLINATE [Suspect]
     Active Substance: LEUCOVORIN CALCIUM
     Indication: RECTAL ADENOCARCINOMA
     Dosage: 784 MG, UNK
     Dates: start: 20191117, end: 20191117
  2. AVELUMAB [Suspect]
     Active Substance: AVELUMAB
     Indication: RECTAL ADENOCARCINOMA
     Dosage: 800 MG, UNK
     Route: 042
     Dates: start: 20191117, end: 20191117
  3. OXALIPLATIN. [Suspect]
     Active Substance: OXALIPLATIN
     Indication: RECTAL ADENOCARCINOMA
     Dosage: 166 MG, UNK
     Dates: start: 20191117, end: 20191117
  4. FLUOROURACIL. [Suspect]
     Active Substance: FLUOROURACIL
     Indication: RECTAL ADENOCARCINOMA
     Dosage: 2352 MG, UNK
     Dates: start: 20191117, end: 20191119

REACTIONS (1)
  - Scrotal swelling [Recovered/Resolved with Sequelae]

NARRATIVE: CASE EVENT DATE: 20200124
